FAERS Safety Report 4972220-9 (Version None)
Quarter: 2006Q2

REPORT INFORMATION
  Report Type: 
  Country: None (occurrence: None)
  Receive Date: 20060413
  Receipt Date: 20060411
  Transmission Date: 20061013
  Serious: Yes (Death, Hospitalization)
  Sender: FDA-Public Use
  Company Number: UG-GLAXOSMITHKLINE-B0420016A

PATIENT
  Age: 36 Year
  Sex: Male

DRUGS (2)
  1. COMBIVIR [Suspect]
     Indication: HIV INFECTION
     Dosage: 1TAB TWICE PER DAY
     Route: 048
  2. TENOFOVIR [Suspect]
     Indication: HIV INFECTION
     Dosage: 300MG PER DAY
     Route: 048

REACTIONS (7)
  - ARTHRALGIA [None]
  - DRUG TOXICITY [None]
  - HYPERHIDROSIS [None]
  - MUSCULAR WEAKNESS [None]
  - PYREXIA [None]
  - RESPIRATORY FAILURE [None]
  - SINUSITIS [None]
